FAERS Safety Report 6842898-3 (Version None)
Quarter: 2010Q3

REPORT INFORMATION
  Report Type: 
  Country: None (occurrence: None)
  Receive Date: 20100714
  Receipt Date: 20070807
  Transmission Date: 20110219
  Serious: No
  Sender: FDA-Public Use
  Company Number: US-PFIZER INC-2007066877

PATIENT
  Sex: Female
  Weight: 109.09 kg

DRUGS (7)
  1. CHANTIX [Suspect]
     Indication: SMOKING CESSATION THERAPY
     Dates: start: 20070724
  2. DEPAKOTE [Concomitant]
  3. RISPERDAL [Concomitant]
  4. KLONOPIN [Concomitant]
  5. TOPAMAX [Concomitant]
  6. TETRACYCLINE [Concomitant]
  7. CELEXA [Concomitant]

REACTIONS (1)
  - ANXIETY [None]
